FAERS Safety Report 8625845-3 (Version None)
Quarter: 2012Q3

REPORT INFORMATION
  Report Type: 
  Country: None (occurrence: None)
  Receive Date: 20120827
  Receipt Date: 20120823
  Transmission Date: 20120928
  Serious: Yes (Other)
  Sender: FDA-Public Use
  Company Number: US-ROCHE-1106962

PATIENT
  Age: 72 Year
  Sex: Female
  Weight: 71.6 kg

DRUGS (4)
  1. CARBOPLATIN [Suspect]
     Indication: OVARIAN EPITHELIAL CANCER
     Dosage: AUC 6 (CYCLE 1-6),6TH CYCLE COMPLETED ON 16/FEB/2012
     Route: 042
     Dates: start: 20111123
  2. AVASTIN [Suspect]
     Indication: OVARIAN EPITHELIAL CANCER
     Dosage: 15 MG/KG IV OVER 30-90 MINUTES ON DAY 1 ON 2 CYCLE ONWARDS
     Route: 042
  3. PACLITAXEL [Suspect]
     Indication: OVARIAN EPITHELIAL CANCER
     Dosage: 175 MG/M2 OVER 3 HRS ON DAY 1(CYCLE 1-6), 6TH CYCLE COMPLETED ON 16/FEB/2012
     Route: 042
     Dates: start: 20111123
  4. IPRATROPIUM BROMIDE [Suspect]
     Indication: PRODUCT USED FOR UNKNOWN INDICATION

REACTIONS (1)
  - VENTRICULAR ARRHYTHMIA [None]
